FAERS Safety Report 7053553-1 (Version None)
Quarter: 2010Q4

REPORT INFORMATION
  Report Type: 
  Country: None (occurrence: None)
  Receive Date: 20101013
  Receipt Date: 20100930
  Transmission Date: 20110411
  Serious: Yes (Hospitalization)
  Sender: FDA-Public Use
  Company Number: FR-JNJFOC-20100805694

PATIENT
  Age: 73 Year
  Sex: Male

DRUGS (4)
  1. DECITABINE (DECITABINE) LYOPHILIZED POWDER [Suspect]
     Indication: ACUTE MYELOID LEUKAEMIA
     Dosage: 20 MG/M2, INTRAVENOUS
     Route: 042
     Dates: start: 20070430, end: 20071115
  2. TANAKAN (GINKGO BILOBA EXTRACT) [Concomitant]
  3. IRBESARTAN [Concomitant]
  4. PRAVASTATIN SODIUM [Concomitant]

REACTIONS (4)
  - ANAEMIA [None]
  - PYELONEPHRITIS ACUTE [None]
  - RENAL CYST [None]
  - THROMBOCYTOPENIA [None]
